FAERS Safety Report 8483135-6 (Version None)
Quarter: 2012Q3

REPORT INFORMATION
  Report Type: 
  Country: None (occurrence: None)
  Receive Date: 20120702
  Receipt Date: 20120620
  Transmission Date: 20120928
  Serious: Yes (Other)
  Sender: FDA-Public Use
  Company Number: CA-ELI_LILLY_AND_COMPANY-CA201204009499

PATIENT
  Sex: Male

DRUGS (5)
  1. RAMIPRIL [Concomitant]
     Dosage: UNK, QD
  2. HYDROCHLOROTHIAZIDE [Concomitant]
     Dosage: UNK, QD
  3. METFORMIN HCL [Concomitant]
     Dosage: UNK, BID
  4. HUMULIN N [Suspect]
     Indication: TYPE 2 DIABETES MELLITUS
     Dosage: UNK
  5. LIPITOR [Concomitant]
     Dosage: UNK, QD

REACTIONS (4)
  - CEREBROVASCULAR ACCIDENT [None]
  - MEMORY IMPAIRMENT [None]
  - SPEECH DISORDER [None]
  - FATIGUE [None]
